FAERS Safety Report 9693530 (Version 1)
Quarter: 2013Q4

REPORT INFORMATION
  Report Type: Spontaneous
  Country: US (occurrence: US)
  Receive Date: 20131118
  Receipt Date: 20131118
  Transmission Date: 20140711
  Serious: Yes (Hospitalization)
  Sender: FDA-Public Use
  Company Number: US-GLAXOSMITHKLINE-A1049694A

PATIENT
  Age: 86 Year
  Sex: Male

DRUGS (6)
  1. ADVAIR [Suspect]
     Indication: CHRONIC OBSTRUCTIVE PULMONARY DISEASE
     Dosage: 1PUFF TWICE PER DAY
     Route: 055
  2. FLUTICASONE NASAL SPRAY [Concomitant]
  3. PROAIR HFA [Concomitant]
  4. COREG [Concomitant]
  5. LEVOTHYROXINE [Concomitant]
  6. SPIRIVA [Concomitant]

REACTIONS (2)
  - Intestinal obstruction [Unknown]
  - Lung disorder [Unknown]
